FAERS Safety Report 16504804 (Version 1)
Quarter: 2019Q3

REPORT INFORMATION
  Report Type: Spontaneous
  Country: FR (occurrence: FR)
  Receive Date: 20190701
  Receipt Date: 20190701
  Transmission Date: 20191004
  Serious: Yes (Death, Other)
  Sender: FDA-Public Use
  Company Number: FR-ASTELLAS-2019US026310

PATIENT
  Age: 9 Decade
  Sex: Female

DRUGS (2)
  1. ISAVUCONAZOLE [Suspect]
     Active Substance: ISAVUCONAZOLE
     Indication: ASPERGILLUS INFECTION
     Dosage: UNK UNK, UNKNOWN FREQ.
     Route: 065
  2. VIDAZA [Concomitant]
     Active Substance: AZACITIDINE
     Indication: LYMPHOCYTIC LEUKAEMIA
     Dosage: UNK, CYCLIC (3 CYCLES)
     Route: 065

REACTIONS (1)
  - Lymphocytic leukaemia [Fatal]
